FAERS Safety Report 6481055-X (Version None)
Quarter: 2009Q4

REPORT INFORMATION
  Report Type: 
  Country: None (occurrence: None)
  Receive Date: 20091203
  Receipt Date: 20091118
  Transmission Date: 20100525
  Serious: Yes (Other)
  Sender: FDA-Public Use
  Company Number: 1000010479

PATIENT
  Age: 29 Year
  Sex: Female
  Weight: 93 kg

DRUGS (3)
  1. ESCITALOPRAM OXALATE [Suspect]
     Dosage: (1000  MG, ONCE), ORAL
     Route: 048
     Dates: start: 20091118, end: 20091118
  2. PIPAMPERON (40 MILLIGRAM, TABLETS) [Suspect]
     Dosage: (4000 MG, ONCE), ORAL
     Route: 048
     Dates: start: 20091118, end: 20091118
  3. ALCOHOL [Suspect]
     Dosage: ORAL
     Route: 048
     Dates: start: 20091118, end: 20091118

REACTIONS (6)
  - ELECTROCARDIOGRAM QT PROLONGED [None]
  - INTENTIONAL OVERDOSE [None]
  - MIOSIS [None]
  - SOMNOLENCE [None]
  - SUICIDE ATTEMPT [None]
  - UNEVALUABLE EVENT [None]
